FAERS Safety Report 8780239 (Version 1)
Quarter: 2012Q4

REPORT INFORMATION
  Report Type: Spontaneous
  Country: US (occurrence: None)
  Receive Date: 20120904
  Receipt Date: 20120904
  Transmission Date: 20130627
  Serious: Yes (Other)
  Sender: FDA-Public Use
  Company Number: None

PATIENT
  Age: 27 Year
  Sex: Male
  Weight: 68.04 kg

DRUGS (1)
  1. PARAGARD [Suspect]
     Dates: start: 20111001, end: 20120821

REACTIONS (6)
  - Blighted ovum [None]
  - Emotional distress [None]
  - Muscle spasms [None]
  - Pregnancy test positive [None]
  - Device dislocation [None]
  - Exposure during pregnancy [None]
